FAERS Safety Report 9114885 (Version 1)
Quarter: 2013Q1

REPORT INFORMATION
  Report Type: Spontaneous
  Country: US (occurrence: None)
  Receive Date: 20130220
  Receipt Date: 20130220
  Transmission Date: 20140127
  Serious: Yes (Life-Threatening)
  Sender: FDA-Public Use
  Company Number: None

PATIENT
  Age: 47 Year
  Sex: 0
  Weight: 96 kg

DRUGS (2)
  1. GADOLINIUM [Suspect]
     Indication: NUCLEAR MAGNETIC RESONANCE IMAGING SPINAL
     Dosage: DURING MRI,
     Route: 040
     Dates: start: 20130208, end: 20130208
  2. GADOLINIUM [Suspect]
     Indication: SCAN WITH CONTRAST
     Dosage: DURING MRI,
     Route: 040
     Dates: start: 20130208, end: 20130208

REACTIONS (1)
  - Anaphylactic shock [None]
